FAERS Safety Report 8863967 (Version 1)
Quarter: 2012Q4

REPORT INFORMATION
  Report Type: 
  Country: US (occurrence: US)
  Receive Date: 20121024
  Receipt Date: 20121024
  Transmission Date: 20130627
  Serious: No
  Sender: FDA-Public Use
  Company Number: US-AMGEN-USASP2011064880

PATIENT
  Age: 36 Year
  Sex: Male
  Weight: 66.67 kg

DRUGS (3)
  1. ENBREL [Suspect]
     Indication: PRODUCT USED FOR UNKNOWN INDICATION
     Dosage: 50 mg, 2 times/wk
  2. CLOBETASOL [Concomitant]
     Dosage: 0.05 %, UNK
     Route: 061
  3. DOVONEX [Concomitant]
     Dosage: 0.005 %, UNK

REACTIONS (1)
  - Contusion [Unknown]
